FAERS Safety Report 26130299 (Version 1)
Quarter: 2025Q4

REPORT INFORMATION
  Report Type: Spontaneous
  Country: US (occurrence: None)
  Receive Date: 20251205
  Receipt Date: 20251205
  Transmission Date: 20260118
  Serious: No
  Sender: FDA-CTU
  Company Number: None

PATIENT
  Age: 65 Year
  Sex: Male
  Weight: 76.5 kg

DRUGS (9)
  1. ALYGLO [Suspect]
     Active Substance: HUMAN IMMUNOGLOBULIN G-STWK
     Indication: Multiple sclerosis
     Dosage: OTHER FREQUENCY : DAILY X 2DAYS Q4WK;
     Route: 042
  2. ALYGLO [Suspect]
     Active Substance: HUMAN IMMUNOGLOBULIN G-STWK
     Indication: Multiple sclerosis
     Dosage: OTHER FREQUENCY : DAILY X 2DAYS Q4WK;
     Route: 042
  3. SoluMedrol 125mg [Concomitant]
     Dates: start: 20251126, end: 20251127
  4. KETOROLAC [Concomitant]
     Active Substance: KETOROLAC TROMETHAMINE
     Dates: start: 20251126, end: 20251127
  5. Acetaminophen 650mg [Concomitant]
     Dates: start: 20251126, end: 20251127
  6. Sodium Chloride 0.9% 500mL [Concomitant]
     Dates: start: 20251126, end: 20251127
  7. Normal saline 0.9% flush [Concomitant]
     Dates: start: 20251126, end: 20251127
  8. Heparin 10 unit/mL [Concomitant]
     Dates: start: 20251126, end: 20251127
  9. DIPHENHYDRAMINE [Concomitant]
     Active Substance: DIPHENHYDRAMINE
     Dates: start: 20251126, end: 20251127

REACTIONS (2)
  - Infusion related reaction [None]
  - Rash [None]

NARRATIVE: CASE EVENT DATE: 20251126
